FAERS Safety Report 13193893 (Version 1)
Quarter: 2017Q1

REPORT INFORMATION
  Report Type: Spontaneous
  Country: GB (occurrence: GB)
  Receive Date: 20170207
  Receipt Date: 20170207
  Transmission Date: 20170428
  Serious: Yes (Death, Disabling)
  Sender: FDA-Public Use
  Company Number: GB-TEVA-736860ACC

PATIENT
  Age: 88 Year
  Sex: Male

DRUGS (3)
  1. SPIRONOLACTONE. [Concomitant]
     Active Substance: SPIRONOLACTONE
  2. AMIODARONE [Suspect]
     Active Substance: AMIODARONE
     Dosage: NOT KNOWN
     Route: 048
     Dates: start: 2015
  3. DIGOXIN. [Suspect]
     Active Substance: DIGOXIN
     Indication: CARDIAC DISORDER
     Dosage: NOT KNOWN
     Route: 048
     Dates: start: 201611, end: 201611

REACTIONS (3)
  - Pulmonary fibrosis [Fatal]
  - Multi-organ disorder [Not Recovered/Not Resolved]
  - Ventricular tachycardia [Not Recovered/Not Resolved]
